FAERS Safety Report 8036415-2 (Version None)
Quarter: 2012Q1

REPORT INFORMATION
  Report Type: 
  Country: None (occurrence: None)
  Receive Date: 20120106
  Receipt Date: 20111228
  Transmission Date: 20120608
  Serious: Yes (Hospitalization)
  Sender: FDA-Public Use
  Company Number: 2011MA018182

PATIENT
  Age: 68 Year
  Sex: Male

DRUGS (6)
  1. ENOXAPARIN SODIUM [Concomitant]
  2. CHEMOTHERAPY [Concomitant]
  3. ADENOSINE [Concomitant]
  4. CALCIUM GLUCONATE [Concomitant]
  5. VERAPAMIL HYDROCHLORIDE [Suspect]
     Indication: SUPRAVENTRICULAR TACHYCARDIA
     Dosage: 5 MG;IV
     Route: 042
     Dates: start: 20111206
  6. AMIODARONE HCL [Concomitant]

REACTIONS (1)
  - CONVULSION [None]
